FAERS Safety Report 7641966-6 (Version None)
Quarter: 2011Q3

REPORT INFORMATION
  Report Type: 
  Country: None (occurrence: None)
  Receive Date: 20110727
  Receipt Date: 20110727
  Transmission Date: 20111222
  Serious: Yes (Other)
  Sender: FDA-Public Use
  Company Number: None

PATIENT
  Sex: Male
  Weight: 25 kg

DRUGS (1)
  1. AMINOCAPROIC ACID [Suspect]
     Indication: PROCOAGULANT THERAPY
     Dates: start: 20110720

REACTIONS (2)
  - LARYNGOSPASM [None]
  - BRONCHOSPASM [None]
